FAERS Safety Report 25986121 (Version 1)
Quarter: 2025Q4

REPORT INFORMATION
  Report Type: Report from Study
  Country: CA (occurrence: CA)
  Receive Date: 20251031
  Receipt Date: 20251031
  Transmission Date: 20260117
  Serious: Yes (Hospitalization, Other)
  Sender: ABBVIE
  Company Number: CA-ABBVIE-6527366

PATIENT
  Age: 83 Year
  Sex: Male

DRUGS (1)
  1. LUPRON [Suspect]
     Active Substance: LEUPROLIDE ACETATE
     Indication: Prostate cancer
     Dosage: FORM STRENGTH: 30 MG?PRE-FILLED SYRINGE
     Route: 065
     Dates: start: 20220916

REACTIONS (6)
  - Post procedural sepsis [Unknown]
  - Nephrolithiasis [Unknown]
  - Flank pain [Not Recovered/Not Resolved]
  - Myelodysplastic syndrome [Unknown]
  - Dysstasia [Unknown]
  - Stent removal [Unknown]

NARRATIVE: CASE EVENT DATE: 20250901
